FAERS Safety Report 18067629 (Version 1)
Quarter: 2020Q3

REPORT INFORMATION
  Report Type: Spontaneous
  Country: US (occurrence: US)
  Receive Date: 20200724
  Receipt Date: 20200724
  Transmission Date: 20201103
  Serious: No
  Sender: FDA-Public Use
  Company Number: US-SA-2020SA191434

PATIENT

DRUGS (11)
  1. AUBAGIO [Suspect]
     Active Substance: TERIFLUNOMIDE
     Indication: MULTIPLE SCLEROSIS
     Dosage: 14 MG, QD
     Route: 048
     Dates: start: 2018
  2. DALFAMPRIDINE. [Concomitant]
     Active Substance: DALFAMPRIDINE
     Dosage: UNK
  3. NEXIUM I.V. [Concomitant]
     Active Substance: ESOMEPRAZOLE SODIUM
  4. B COMPLEX [CALCIUM PANTOTHENATE;LIVER EXTRACT;NICOTINAMIDE;PYRIDOXINE [Concomitant]
  5. TRAMADOL. [Concomitant]
     Active Substance: TRAMADOL
  6. LYRICA [Concomitant]
     Active Substance: PREGABALIN
  7. GLIMEPIRIDE. [Concomitant]
     Active Substance: GLIMEPIRIDE
  8. ROSUVASTATIN. [Concomitant]
     Active Substance: ROSUVASTATIN
  9. VALSARTAN + HIDROCLOROTIAZIDA [Concomitant]
     Active Substance: HYDROCHLOROTHIAZIDE\VALSARTAN
  10. MAGNESIUM [Concomitant]
     Active Substance: MAGNESIUM
  11. XYZAL [Concomitant]
     Active Substance: LEVOCETIRIZINE DIHYDROCHLORIDE

REACTIONS (1)
  - Peripheral swelling [Unknown]

NARRATIVE: CASE EVENT DATE: 2020
